FAERS Safety Report 4365772-3 (Version None)
Quarter: 2004Q2

REPORT INFORMATION
  Report Type: 
  Country: None (occurrence: None)
  Receive Date: 20040520
  Receipt Date: 20040506
  Transmission Date: 20050107
  Serious: No
  Sender: FDA-Public Use
  Company Number: 2004AP02249

PATIENT
  Age: 77 Year
  Sex: Male

DRUGS (1)
  1. ANAPEINE [Suspect]
     Indication: EPIDURAL ANAESTHESIA
     Dosage: 3 ML /HR ED
     Route: 008

REACTIONS (4)
  - ANAESTHETIC COMPLICATION [None]
  - ASTHENIA [None]
  - DYSURIA [None]
  - PAIN [None]
